FAERS Safety Report 8995570 (Version 1)
Quarter: 2013Q1

REPORT INFORMATION
  Report Type: Spontaneous
  Country: US (occurrence: US)
  Receive Date: 20130103
  Receipt Date: 20130103
  Transmission Date: 20140127
  Serious: No
  Sender: FDA-Public Use
  Company Number: US-ABBOTT-12P-163-0949986-00

PATIENT
  Sex: Male
  Weight: 83.99 kg

DRUGS (5)
  1. SYNTHROID [Suspect]
     Indication: HYPOTHYROIDISM
     Dates: start: 2003
  2. SYNTHROID [Suspect]
     Indication: AUTOIMMUNE THYROIDITIS
     Dosage: ONCE DAILY, 125MCG AND 112MCG
     Dates: start: 201201
  3. SYNTHROID [Suspect]
     Indication: HYPOTHYROIDISM
     Dates: start: 2003
  4. SYNTHROID [Suspect]
     Indication: AUTOIMMUNE THYROIDITIS
     Dosage: ONCE DAILY, 125MCG AND 112MCG
     Dates: start: 201201
  5. FISH OIL [Concomitant]
     Indication: PRODUCT USED FOR UNKNOWN INDICATION

REACTIONS (10)
  - Coeliac disease [Not Recovered/Not Resolved]
  - Autoimmune thyroiditis [Not Recovered/Not Resolved]
  - Agitation [Recovered/Resolved]
  - Labile blood pressure [Recovered/Resolved]
  - Abdominal discomfort [Recovering/Resolving]
  - Panic attack [Recovered/Resolved]
  - Fatigue [Recovered/Resolved]
  - Muscular weakness [Recovered/Resolved]
  - Anxiety [Recovered/Resolved]
  - Dry eye [Recovered/Resolved]
